FAERS Safety Report 5312824-7 (Version None)
Quarter: 2007Q2

REPORT INFORMATION
  Report Type: 
  Country: None (occurrence: None)
  Receive Date: 20070424
  Receipt Date: 20070413
  Transmission Date: 20071010
  Serious: Yes (Other)
  Sender: FDA-Public Use
  Company Number: S07-USA-01615-01

PATIENT
  Age: 15 Year
  Sex: Female

DRUGS (6)
  1. LEXAPRO [Suspect]
     Indication: ANXIETY
     Dosage: 5 MG QW PO
     Route: 048
     Dates: start: 20070301, end: 20070311
  2. LEXAPRO [Suspect]
     Indication: DEPRESSION
     Dosage: 5 MG QW PO
     Route: 048
     Dates: start: 20070301, end: 20070311
  3. LEXAPRO [Suspect]
     Indication: ANXIETY
     Dosage: 5 MG QW PO
     Route: 048
     Dates: start: 20070201, end: 20070201
  4. LEXAPRO [Suspect]
     Indication: DEPRESSION
     Dosage: 5 MG QW PO
     Route: 048
     Dates: start: 20070201, end: 20070201
  5. LEXAPRO [Suspect]
     Indication: ANXIETY
     Dosage: 10 MG QD PO
     Route: 048
     Dates: start: 20070201, end: 20070301
  6. LEXAPRO [Suspect]
     Indication: DEPRESSION
     Dosage: 10 MG QD PO
     Route: 048
     Dates: start: 20070201, end: 20070301

REACTIONS (3)
  - LOSS OF CONSCIOUSNESS [None]
  - PETIT MAL EPILEPSY [None]
  - TREMOR [None]
